FAERS Safety Report 5469281-X (Version None)
Quarter: 2007Q3

REPORT INFORMATION
  Report Type: 
  Country: None (occurrence: None)
  Receive Date: 20070924
  Receipt Date: 20070910
  Transmission Date: 20080115
  Serious: Yes (Other)
  Sender: FDA-Public Use
  Company Number: 107#03#2007-03503

PATIENT
  Age: 35 Year
  Sex: Female

DRUGS (7)
  1. MIRTAZAPINE [Suspect]
     Indication: ANXIETY
     Dosage: 30 MG ORAL, 45 MG ORAL, ORAL
     Route: 048
     Dates: start: 20020912, end: 20030925
  2. MIRTAZAPINE [Suspect]
     Indication: DEPRESSION
     Dosage: 30 MG ORAL, 45 MG ORAL, ORAL
     Route: 048
     Dates: start: 20020912, end: 20030925
  3. MIRTAZAPINE [Suspect]
     Indication: ANXIETY
     Dosage: 30 MG ORAL, 45 MG ORAL, ORAL
     Route: 048
     Dates: start: 20030925, end: 20060124
  4. MIRTAZAPINE [Suspect]
     Indication: DEPRESSION
     Dosage: 30 MG ORAL, 45 MG ORAL, ORAL
     Route: 048
     Dates: start: 20030925, end: 20060124
  5. MIRTAZAPINE [Suspect]
     Indication: ANXIETY
     Dosage: 30 MG ORAL, 45 MG ORAL, ORAL
     Route: 048
     Dates: start: 20060124, end: 20060201
  6. MIRTAZAPINE [Suspect]
     Indication: DEPRESSION
     Dosage: 30 MG ORAL, 45 MG ORAL, ORAL
     Route: 048
     Dates: start: 20060124, end: 20060201
  7. SETAZINE (SETAZINE) [Concomitant]

REACTIONS (4)
  - ABASIA [None]
  - MOBILITY DECREASED [None]
  - MUSCLE SPASMS [None]
  - PAIN IN EXTREMITY [None]
